FAERS Safety Report 4868009-1 (Version None)
Quarter: 2005Q4

REPORT INFORMATION
  Report Type: 
  Country: None (occurrence: None)
  Receive Date: 20051229
  Receipt Date: 20051219
  Transmission Date: 20060501
  Serious: Yes (Life-Threatening, Hospitalization)
  Sender: FDA-Public Use
  Company Number: FR-BOEHRINGER INGELHEIM PHARMACEUTICALS, INC.-2005-FF-00936FF

PATIENT
  Age: 56 Year
  Sex: Male
  Weight: 67 kg

DRUGS (4)
  1. VIRAMUNE [Suspect]
     Indication: HIV INFECTION
     Route: 048
     Dates: start: 20010615
  2. VIDEX [Concomitant]
     Indication: HIV INFECTION
     Route: 048
     Dates: start: 20000616
  3. ZIAGEN [Concomitant]
     Indication: HIV INFECTION
     Route: 048
     Dates: start: 20020615
  4. LIPANTHYL [Concomitant]
     Indication: LIPODYSTROPHY ACQUIRED
     Route: 048
     Dates: start: 20010615

REACTIONS (1)
  - MYOCARDIAL INFARCTION [None]
